FAERS Safety Report 21135707 (Version 1)
Quarter: 2022Q3

REPORT INFORMATION
  Report Type: Spontaneous
  Country: CA (occurrence: CA)
  Receive Date: 20220727
  Receipt Date: 20220727
  Transmission Date: 20221026
  Serious: Yes (Death, Other)
  Sender: FDA-Public Use
  Company Number: CA-BAXTER-2022BAX015481

PATIENT
  Age: 6 Month
  Sex: Male

DRUGS (5)
  1. CYCLOPHOSPHAMIDE [Suspect]
     Active Substance: CYCLOPHOSPHAMIDE
     Indication: Bone marrow conditioning regimen
     Dosage: 1 EVERY 1 DAYS,DOSAGE FORM NOT SPECIFIED,INTRAVENOUS(NOT OTHERWISE SPECIFIED)
     Route: 042
  2. ALEMTUZUMAB [Suspect]
     Active Substance: ALEMTUZUMAB
     Indication: Bone marrow conditioning regimen
     Dosage: 0.2 MG/KG, ONCE A DAY,DOSAGE FORM:SOLUTION INTRAVENOUS,INTRAVENOUS(NOT OTHERWISE SPECIFIED)
     Route: 042
  3. BUSULFAN [Suspect]
     Active Substance: BUSULFAN
     Indication: Bone marrow conditioning regimen
     Dosage: DOSAGE FORM NOT SPECIFIED
     Route: 065
  4. FLUDARABINE PHOSPHATE [Suspect]
     Active Substance: FLUDARABINE PHOSPHATE
     Indication: Bone marrow conditioning regimen
     Dosage: 30 MG/M2,ONCE A DAY,INTRAVENOUS(NOT OTHERWISE SPECIFIED)
     Route: 042
  5. THIOTEPA [Suspect]
     Active Substance: THIOTEPA
     Indication: Bone marrow conditioning regimen
     Dosage: DOSAGE FORM NOT SPECIFIED
     Route: 065

REACTIONS (4)
  - Cytomegalovirus viraemia [Fatal]
  - Off label use [Fatal]
  - Staphylococcal bacteraemia [Fatal]
  - Sepsis [Fatal]
